FAERS Safety Report 9288303 (Version 1)
Quarter: 2013Q2

REPORT INFORMATION
  Report Type: Spontaneous
  Country: US (occurrence: US)
  Receive Date: 20130514
  Receipt Date: 20130514
  Transmission Date: 20140414
  Serious: Yes (Other)
  Sender: FDA-Public Use
  Company Number: US-ELI_LILLY_AND_COMPANY-US201305000838

PATIENT
  Age: 37 Year
  Sex: Female

DRUGS (8)
  1. CYMBALTA [Suspect]
     Indication: FIBROMYALGIA
     Dosage: 60 MG, QD
  2. CYMBALTA [Suspect]
     Dosage: 90 MG, UNK
  3. CYMBALTA [Suspect]
     Dosage: 60 MG, UNK
  4. CYMBALTA [Suspect]
     Dosage: 120 MG, QD
  5. ZOLPIDEM [Concomitant]
     Indication: SLEEP DISORDER
  6. VITAMIN E [Concomitant]
     Dosage: 1000 MG, QD
  7. FISH OIL [Concomitant]
     Dosage: 500 MG, QD
  8. VITAMIN D3 [Concomitant]
     Dosage: 500 MG, QD

REACTIONS (11)
  - Skin exfoliation [Not Recovered/Not Resolved]
  - Drug ineffective [Unknown]
  - Feeling abnormal [Unknown]
  - Skin fissures [Not Recovered/Not Resolved]
  - Pain [Not Recovered/Not Resolved]
  - Musculoskeletal stiffness [Not Recovered/Not Resolved]
  - Hypoaesthesia [Not Recovered/Not Resolved]
  - Secretion discharge [Not Recovered/Not Resolved]
  - Agitation [Not Recovered/Not Resolved]
  - Dermatillomania [Not Recovered/Not Resolved]
  - Skin burning sensation [Not Recovered/Not Resolved]
